APPROVED DRUG PRODUCT: QUARTETTE
Active Ingredient: ETHINYL ESTRADIOL; LEVONORGESTREL
Strength: 0.02MG,0.15MG;0.025MG,0.15MG;0.03MG,0.15MG;0.01MG,N/A
Dosage Form/Route: TABLET;ORAL
Application: N204061 | Product #001 | TE Code: AB
Applicant: TEVA BRANDED PHARMACEUTICAL PRODUCTS R AND D INC
Approved: Mar 28, 2013 | RLD: Yes | RS: Yes | Type: RX

PATENTS:
Patent 8415332 | Expires: Mar 11, 2029